FAERS Safety Report 21963239 (Version 1)
Quarter: 2023Q1

REPORT INFORMATION
  Report Type: Spontaneous
  Country: US (occurrence: US)
  Receive Date: 20230207
  Receipt Date: 20230207
  Transmission Date: 20230417
  Serious: Yes (Other)
  Sender: FDA-Public Use
  Company Number: US-PFIZER INC-PV202300020968

PATIENT
  Age: 70 Year
  Sex: Female
  Weight: 72.562 kg

DRUGS (2)
  1. SPIRONOLACTONE [Interacting]
     Active Substance: SPIRONOLACTONE
     Dosage: UNK
  2. IBRANCE [Interacting]
     Active Substance: PALBOCICLIB
     Indication: Breast cancer metastatic
     Dosage: 75 MG
     Dates: start: 202105

REACTIONS (2)
  - Drug interaction [Unknown]
  - Postural orthostatic tachycardia syndrome [Unknown]

NARRATIVE: CASE EVENT DATE: 20211001
